FAERS Safety Report 18579183 (Version 2)
Quarter: 2021Q3

REPORT INFORMATION
  Report Type: Report from Study
  Country: CA (occurrence: CA)
  Receive Date: 20201204
  Receipt Date: 20210727
  Transmission Date: 20211014
  Serious: Yes (Other)
  Sender: FDA-Public Use
  Company Number: CA-JNJFOC-20201023947

PATIENT
  Age: 54 Year
  Sex: Male

DRUGS (1)
  1. REMICADE [Suspect]
     Active Substance: INFLIXIMAB
     Indication: ANKYLOSING SPONDYLITIS
     Route: 042
     Dates: start: 20150401

REACTIONS (5)
  - Off label use [Unknown]
  - Calculus bladder [Unknown]
  - Benign renal neoplasm [Recovered/Resolved]
  - Hepatic failure [Unknown]
  - Product use issue [Unknown]

NARRATIVE: CASE EVENT DATE: 20150401
